FAERS Safety Report 25551424 (Version 1)
Quarter: 2025Q3

REPORT INFORMATION
  Report Type: Spontaneous
  Country: US (occurrence: US)
  Receive Date: 20250714
  Receipt Date: 20250714
  Transmission Date: 20251021
  Serious: No
  Sender: SANOFI AVENTIS
  Company Number: US-SA-2025SA196710

PATIENT
  Age: 11 Year
  Sex: Female

DRUGS (1)
  1. FABRAZYME [Suspect]
     Active Substance: AGALSIDASE BETA
     Indication: Fabry^s disease
     Dosage: 45 MG, QOW
     Route: 042
     Dates: start: 20241212

REACTIONS (4)
  - Temperature intolerance [Unknown]
  - Condition aggravated [Unknown]
  - Paraesthesia [Unknown]
  - Burning sensation [Unknown]
